FAERS Safety Report 7965127-6 (Version None)
Quarter: 2011Q4

REPORT INFORMATION
  Report Type: 
  Country: None (occurrence: None)
  Receive Date: 20111208
  Receipt Date: 20111031
  Transmission Date: 20120403
  Serious: No
  Sender: FDA-Public Use
  Company Number: US-BAYER-2011-106697

PATIENT
  Age: 81 Year
  Sex: Male
  Weight: 70.748 kg

DRUGS (7)
  1. VITAMIN E [Concomitant]
  2. CALCITRATE [CALCIUM] [Concomitant]
  3. BREWER'S YEAST [YEAST DRIED] [Concomitant]
  4. RED YEAST RICE [Concomitant]
  5. ALEVE (CAPLET) [Suspect]
     Indication: ARTHRITIS
     Dosage: 1 TAB ONCE DAILY
     Route: 048
     Dates: start: 20111001, end: 20111027
  6. ASCORBIC ACID [Concomitant]
  7. GLIPIZIDE [Concomitant]

REACTIONS (3)
  - DYSPEPSIA [None]
  - NO ADVERSE EVENT [None]
  - HIATUS HERNIA [None]
